FAERS Safety Report 7475719-9 (Version None)
Quarter: 2011Q2

REPORT INFORMATION
  Report Type: 
  Country: None (occurrence: None)
  Receive Date: 20110512
  Receipt Date: 20110510
  Transmission Date: 20111010
  Serious: Yes (Other)
  Sender: FDA-Public Use
  Company Number: US-ROCHE-776440

PATIENT
  Sex: Female

DRUGS (2)
  1. ACCUTANE [Suspect]
     Route: 065
     Dates: start: 19890101, end: 19910101
  2. ACCUTANE [Suspect]
     Route: 065
     Dates: start: 20080501, end: 20090101

REACTIONS (2)
  - DIVERTICULITIS [None]
  - IRRITABLE BOWEL SYNDROME [None]
